FAERS Safety Report 9601320 (Version 2)
Quarter: 2013Q4

REPORT INFORMATION
  Report Type: Report from Study
  Country: US (occurrence: US)
  Receive Date: 20131007
  Receipt Date: 20131010
  Transmission Date: 20140711
  Serious: Yes (Hospitalization)
  Sender: FDA-Public Use
  Company Number: US-ROCHE-1284724

PATIENT
  Sex: Female
  Weight: 93.52 kg

DRUGS (2)
  1. XELODA [Suspect]
     Indication: COLON CANCER
     Dosage: 14 DAYS ON, 7 DAYS OFF
     Route: 048
     Dates: start: 201201, end: 20130613
  2. LOVENOX [Concomitant]
     Indication: THROMBOSIS
     Route: 058
     Dates: start: 201111

REACTIONS (2)
  - Hernia [Recovering/Resolving]
  - Wound [Unknown]
